FAERS Safety Report 20478384 (Version 2)
Quarter: 2022Q1

REPORT INFORMATION
  Report Type: Report from Study
  Country: AR (occurrence: AR)
  Receive Date: 20220216
  Receipt Date: 20220308
  Transmission Date: 20220424
  Serious: Yes (Death, Hospitalization, Other)
  Sender: FDA-Public Use
  Company Number: AR-BRISTOL-MYERS SQUIBB COMPANY-BMS-2022-022769

PATIENT
  Age: 92 Year
  Sex: Female

DRUGS (1)
  1. APIXABAN [Suspect]
     Active Substance: APIXABAN
     Indication: Cerebrovascular accident prophylaxis
     Dosage: 5 MILLIGRAM
     Route: 065
     Dates: start: 20191217

REACTIONS (2)
  - Cardio-respiratory arrest [Fatal]
  - Arrhythmia [Unknown]

NARRATIVE: CASE EVENT DATE: 20211201
